FAERS Safety Report 10519656 (Version 1)
Quarter: 2014Q4

REPORT INFORMATION
  Report Type: Spontaneous
  Country: US (occurrence: None)
  Receive Date: 20141014
  Receipt Date: 20141014
  Transmission Date: 20150528
  Serious: Yes (Other)
  Sender: FDA-Public Use
  Company Number: None

PATIENT
  Age: 53 Year
  Sex: Male
  Weight: 111 kg

DRUGS (1)
  1. SULFAMETHOXAZOLE/TRIMETHOPRIM [Suspect]
     Active Substance: SULFAMETHOXAZOLE\TRIMETHOPRIM
     Indication: SURGERY
     Dosage: MG  BID  PO?~05/29/2014 THRU 06/05/2014
     Route: 048
     Dates: start: 20140529, end: 20140605

REACTIONS (4)
  - Urticaria [None]
  - Rash [None]
  - Rash papular [None]
  - Pruritus [None]

NARRATIVE: CASE EVENT DATE: 20140605
